FAERS Safety Report 6571327-2 (Version None)
Quarter: 2010Q1

REPORT INFORMATION
  Report Type: 
  Country: None (occurrence: None)
  Receive Date: 20100205
  Receipt Date: 20100129
  Transmission Date: 20100710
  Serious: Yes (Death, Hospitalization)
  Sender: FDA-Public Use
  Company Number: US-BRISTOL-MYERS SQUIBB COMPANY-14933931

PATIENT
  Age: 73 Year
  Sex: Male
  Weight: 74 kg

DRUGS (10)
  1. ERBITUX [Suspect]
     Indication: COLON CANCER
     Dosage: LAST DOSE ON 25NOV09
     Route: 042
     Dates: start: 20090715, end: 20091125
  2. FLUOROURACIL [Suspect]
     Indication: COLON CANCER
     Dosage: CYCLE1+2=400MG/M2 IV PUSH ON DAY1 FOLLOWED BY 2400MG/M2 CIV OVER 46-48HRS
     Route: 042
     Dates: start: 20090715, end: 20091209
  3. ELOXATIN [Suspect]
     Indication: COLON CANCER
     Dosage: CYCLE 1+2=85MG/M2 120MIN ON DAY1.
     Route: 042
     Dates: start: 20090715, end: 20091207
  4. BYSTOLIC [Concomitant]
  5. DOXYCYCLINE [Concomitant]
  6. GARLIC [Concomitant]
     Dosage: DOSAGE FORM IS CAPSULE
  7. ASPIRIN [Concomitant]
     Dosage: LOW DOSE ASPIRIN WAS TAKEN
  8. NEXIUM [Concomitant]
  9. SIMVASTATIN [Concomitant]
  10. VENOFER [Concomitant]
     Route: 042

REACTIONS (2)
  - PNEUMONIA [None]
  - PULMONARY FIBROSIS [None]
